FAERS Safety Report 9889469 (Version 1)
Quarter: 2014Q1

REPORT INFORMATION
  Report Type: Spontaneous
  Country: CA (occurrence: CA)
  Receive Date: 20140211
  Receipt Date: 20140211
  Transmission Date: 20141002
  Serious: Yes (Other)
  Sender: FDA-Public Use
  Company Number: CA-ASTRAZENECA-2014SE07610

PATIENT
  Age: 76 Year
  Sex: Male

DRUGS (1)
  1. CRESTOR [Suspect]
     Route: 048

REACTIONS (4)
  - Fine motor delay [Recovering/Resolving]
  - Pain [Recovering/Resolving]
  - Amnesia [Recovering/Resolving]
  - Asthenia [Recovering/Resolving]
